FAERS Safety Report 10556150 (Version 12)
Quarter: 2017Q2

REPORT INFORMATION
  Report Type: Report from Study
  Country: CA (occurrence: CA)
  Receive Date: 20141031
  Receipt Date: 20170612
  Transmission Date: 20170829
  Serious: Yes (Other)
  Sender: FDA-Public Use
  Company Number: CA-ROCHE-1312569

PATIENT
  Age: 62 Year
  Sex: Female

DRUGS (18)
  1. ADALAT [Concomitant]
     Active Substance: NIFEDIPINE
  2. ASA [Concomitant]
     Active Substance: ASPIRIN
     Route: 065
  3. VITAMIN B COMPLEX NOS [Concomitant]
     Active Substance: CYANOCOBALAMIN\PYRIDOXINE HYDROCHLORIDE\RIBOFLAVIN\SODIUM PANTOTHENATE\THIAMINE HYDROCHLORIDE\VITAMIN B COMPLEX
  4. ACTEMRA [Suspect]
     Active Substance: TOCILIZUMAB
     Route: 042
     Dates: start: 20150205, end: 20170518
  5. ZOPICLONE [Concomitant]
     Active Substance: ZOPICLONE
  6. VALSARTAN. [Concomitant]
     Active Substance: VALSARTAN
  7. CITALOPRAM [Concomitant]
     Active Substance: CITALOPRAM HYDROBROMIDE
  8. PLAQUENIL [Concomitant]
     Active Substance: HYDROXYCHLOROQUINE SULFATE
  9. ARTHROTEC [Concomitant]
     Active Substance: DICLOFENAC SODIUM\MISOPROSTOL
  10. DILAUDID [Concomitant]
     Active Substance: HYDROMORPHONE HYDROCHLORIDE
  11. CALCITONIN [Concomitant]
     Active Substance: CALCITONIN
  12. ACTEMRA [Suspect]
     Active Substance: TOCILIZUMAB
     Route: 042
     Dates: start: 20140811
  13. ALENDRONATE [Concomitant]
     Active Substance: ALENDRONATE SODIUM
  14. COD LIVER [Concomitant]
     Active Substance: COD LIVER OIL
  15. ACTEMRA [Suspect]
     Active Substance: TOCILIZUMAB
     Indication: RHEUMATOID ARTHRITIS
     Route: 042
     Dates: start: 20131008
  16. WELLBUTRIN [Concomitant]
     Active Substance: BUPROPION HYDROCHLORIDE
  17. TRAMADOL. [Concomitant]
     Active Substance: TRAMADOL
  18. OMEGA 3 [Concomitant]
     Active Substance: OMEGA-3 FATTY ACIDS

REACTIONS (10)
  - Dyspnoea [Unknown]
  - Alopecia [Unknown]
  - Sinus headache [Unknown]
  - Tooth disorder [Unknown]
  - Sinusitis [Not Recovered/Not Resolved]
  - Drug ineffective [Unknown]
  - Fibromyalgia [Not Recovered/Not Resolved]
  - Viral upper respiratory tract infection [Not Recovered/Not Resolved]
  - Pain in extremity [Unknown]
  - Weight increased [Not Recovered/Not Resolved]

NARRATIVE: CASE EVENT DATE: 20131104
